FAERS Safety Report 14289651 (Version 2)
Quarter: 2017Q4

REPORT INFORMATION
  Report Type: Spontaneous
  Country: BY (occurrence: BY)
  Receive Date: 20171214
  Receipt Date: 20171222
  Transmission Date: 20180321
  Serious: Yes (Life-Threatening)
  Sender: FDA-Public Use
  Company Number: BY-PFIZER INC-2017534156

PATIENT
  Age: 81 Year
  Sex: Female

DRUGS (7)
  1. LISINOPRIL. [Concomitant]
     Active Substance: LISINOPRIL
     Dosage: 5 MG, 2X/DAY
     Route: 048
  2. ASPICARD [Concomitant]
     Dosage: 75 MG, 1X/DAY
     Route: 048
  3. GLYCINE. [Concomitant]
     Active Substance: GLYCINE
     Dosage: 200 MG, 3X/DAY (2 TABLETS THRICE DAILY)
     Route: 060
  4. CEREPRO [Concomitant]
     Dosage: 800 MG, 3X/DAY (2 TABLETS THRICE DAILY)
     Route: 048
  5. INDAPAMIDE. [Concomitant]
     Active Substance: INDAPAMIDE
     Dosage: 2.5 MG, 1X/DAY
     Route: 048
  6. NIXAR (BILASTINE) [Interacting]
     Active Substance: BILASTINE
     Indication: URTICARIA
     Dosage: 20 MG, DAILY
     Route: 048
  7. ATORVASTATIN CALCIUM. [Suspect]
     Active Substance: ATORVASTATIN CALCIUM
     Dosage: 1 DF, 1X/DAY
     Route: 048

REACTIONS (5)
  - Dry mouth [Recovered/Resolved]
  - Insomnia [Recovered/Resolved]
  - Urinary retention [Recovered/Resolved]
  - Thirst [Recovered/Resolved]
  - Labelled drug-drug interaction medication error [Recovered/Resolved]

NARRATIVE: CASE EVENT DATE: 20171125
